FAERS Safety Report 7048338-6 (Version None)
Quarter: 2010Q4

REPORT INFORMATION
  Report Type: 
  Country: None (occurrence: None)
  Receive Date: 20101015
  Receipt Date: 20101011
  Transmission Date: 20110411
  Serious: Yes (Other)
  Sender: FDA-Public Use
  Company Number: NZ-ROCHE-732565

PATIENT
  Sex: Male

DRUGS (4)
  1. TOCILIZUMAB [Suspect]
     Dosage: DOSE: 8MG/KG = 300 MG
     Route: 042
     Dates: start: 20070101
  2. PREDNISONE [Concomitant]
     Dosage: FREQUENCY: ALTERNATE DAYS
     Route: 048
     Dates: start: 20000101
  3. METHOTREXATE [Concomitant]
     Route: 048
  4. FOLIC ACID [Concomitant]
     Route: 048

REACTIONS (1)
  - COLITIS ULCERATIVE [None]
